FAERS Safety Report 5736315-4 (Version None)
Quarter: 2008Q2

REPORT INFORMATION
  Report Type: 
  Country: None (occurrence: None)
  Receive Date: 20080506
  Receipt Date: 20070828
  Transmission Date: 20081010
  Serious: Yes (Hospitalization)
  Sender: FDA-Public Use
  Company Number: T200700989

PATIENT
  Age: 71 Year
  Sex: Male

DRUGS (1)
  1. METHADOSE [Suspect]

REACTIONS (1)
  - OVERDOSE [None]
